FAERS Safety Report 22924975 (Version 2)
Quarter: 2023Q4

REPORT INFORMATION
  Report Type: Spontaneous
  Country: JP (occurrence: JP)
  Receive Date: 20230908
  Receipt Date: 20231031
  Transmission Date: 20240109
  Serious: Yes (Other)
  Sender: FDA-Public Use
  Company Number: JP-TEVA-2023-JP-2880040

PATIENT
  Sex: Male

DRUGS (4)
  1. AZILECT [Suspect]
     Active Substance: RASAGILINE MESYLATE
     Indication: Product used for unknown indication
     Dosage: 1 MILLIGRAM DAILY;
     Route: 048
  2. AZILECT [Suspect]
     Active Substance: RASAGILINE MESYLATE
     Dosage: .5 MILLIGRAM DAILY;
     Route: 048
     Dates: start: 20230703
  3. LEVODOPA [Suspect]
     Active Substance: LEVODOPA
     Indication: Product used for unknown indication
     Dosage: LEVODOPA AND PREPARATIONS
     Route: 065
  4. LEVODOPA [Suspect]
     Active Substance: LEVODOPA
     Route: 065
     Dates: start: 20230703

REACTIONS (2)
  - Progressive supranuclear palsy [Unknown]
  - Impulse-control disorder [Not Recovered/Not Resolved]
